FAERS Safety Report 14163895 (Version 1)
Quarter: 2017Q4

REPORT INFORMATION
  Report Type: Spontaneous
  Country: US (occurrence: US)
  Receive Date: 20171106
  Receipt Date: 20171106
  Transmission Date: 20180321
  Serious: Yes (Other)
  Sender: FDA-Public Use
  Company Number: US-NAPPMUNDI-USA-2017-0141483

PATIENT
  Sex: Male

DRUGS (1)
  1. OXYCONTIN [Suspect]
     Active Substance: OXYCODONE HYDROCHLORIDE
     Indication: PRODUCT USED FOR UNKNOWN INDICATION
     Dosage: 40 MG, BID
     Route: 048

REACTIONS (8)
  - Sensory loss [Unknown]
  - Coagulation factor V level abnormal [Unknown]
  - Limb injury [Unknown]
  - Back disorder [Unknown]
  - Knee operation [Unknown]
  - Thrombosis [Unknown]
  - Skin discolouration [Unknown]
  - Pain [Unknown]
